FAERS Safety Report 18051455 (Version 3)
Quarter: 2020Q4

REPORT INFORMATION
  Report Type: Spontaneous
  Country: FR (occurrence: FR)
  Receive Date: 20200721
  Receipt Date: 20201008
  Transmission Date: 20210113
  Serious: Yes (Death, Life-Threatening)
  Sender: FDA-Public Use
  Company Number: FR-GE HEALTHCARE LIFE SCIENCES-2020CSU003104

PATIENT

DRUGS (2)
  1. VISIPAQUE [Suspect]
     Active Substance: IODIXANOL
     Indication: PRODUCT USED FOR UNKNOWN INDICATION
  2. VISIPAQUE [Suspect]
     Active Substance: IODIXANOL
     Indication: COMPUTERISED TOMOGRAM THORAX
     Dosage: 60 ML AT THE RATE OF 3 ML/SEC, ONCE
     Route: 042
     Dates: start: 20200710, end: 20200710

REACTIONS (3)
  - Shock [Unknown]
  - Cardio-respiratory arrest [Unknown]
  - Acute pulmonary oedema [Fatal]

NARRATIVE: CASE EVENT DATE: 20200710
